FAERS Safety Report 9798416 (Version 3)
Quarter: 2014Q1

REPORT INFORMATION
  Report Type: Report from Study
  Country: US (occurrence: US)
  Receive Date: 20140106
  Receipt Date: 20140124
  Transmission Date: 20141002
  Serious: Yes (Hospitalization)
  Sender: FDA-Public Use
  Company Number: US-UCBSA-107677

PATIENT
  Age: 61 Year
  Sex: Female
  Weight: 91.4 kg

DRUGS (13)
  1. CIMZIA [Suspect]
     Indication: RHEUMATOID ARTHRITIS
     Dosage: UNKNOWN DOSE; ML; NO OF DOSES RECEIVED:38
     Route: 058
     Dates: start: 20120723
  2. FOLIC ACID [Concomitant]
     Indication: NUTRITIONAL SUPPLEMENTATION
     Route: 048
     Dates: start: 2005
  3. CRANBERRY PILLS [Concomitant]
     Indication: CYSTITIS
     Dosage: 4 ; QD
     Route: 048
     Dates: start: 20121208
  4. MULTIVITAMINS [Concomitant]
     Indication: NUTRITIONAL SUPPLEMENTATION
     Dosage: 1 QD
     Route: 048
     Dates: start: 20131012
  5. VIT C [Concomitant]
     Indication: NUTRITIONAL SUPPLEMENTATION
     Route: 048
     Dates: start: 20120708
  6. VIT D3 [Concomitant]
     Indication: NUTRITIONAL SUPPLEMENTATION
     Route: 048
     Dates: start: 20120708
  7. MAGNESIUM [Concomitant]
     Indication: NUTRITIONAL SUPPLEMENTATION
     Route: 048
     Dates: start: 20120708
  8. CALCIUM [Concomitant]
     Indication: NUTRITIONAL SUPPLEMENTATION
     Route: 048
     Dates: start: 20120708
  9. METHOTREXATE [Concomitant]
     Indication: RHEUMATOID ARTHRITIS
     Route: 048
     Dates: start: 20120112
  10. TEMAZEPAM [Concomitant]
     Indication: INSOMNIA
     Dosage: 30 MG; QHS
     Route: 048
     Dates: start: 2005
  11. ATENOLOL [Concomitant]
     Indication: HYPERTENSION
     Route: 048
     Dates: start: 2005
  12. TRAMADOL [Concomitant]
     Indication: RHEUMATOID ARTHRITIS
     Route: 048
     Dates: start: 20120625
  13. CRESTOR [Concomitant]
     Indication: HYPERCHOLESTEROLAEMIA
     Route: 048
     Dates: start: 20130913

REACTIONS (1)
  - Appendicitis [Recovered/Resolved]
